FAERS Safety Report 8602986-8 (Version None)
Quarter: 2012Q3

REPORT INFORMATION
  Report Type: 
  Country: None (occurrence: None)
  Receive Date: 20120817
  Receipt Date: 20120529
  Transmission Date: 20120928
  Serious: No
  Sender: FDA-Public Use
  Company Number: US-GLAXOSMITHKLINE-A0969297A

PATIENT
  Sex: Male

DRUGS (1)
  1. VOTRIENT [Suspect]
     Indication: RENAL CANCER
     Dosage: 800MG PER DAY
     Route: 048

REACTIONS (6)
  - GLOSSODYNIA [None]
  - MALAISE [None]
  - BACK PAIN [None]
  - TONGUE DISORDER [None]
  - SLEEP DISORDER [None]
  - ANXIETY [None]
